FAERS Safety Report 5277021-2 (Version None)
Quarter: 2007Q1

REPORT INFORMATION
  Report Type: 
  Country: None (occurrence: None)
  Receive Date: 20070327
  Receipt Date: 20070129
  Transmission Date: 20070707
  Serious: No
  Sender: FDA-Public Use
  Company Number: US-BRISTOL-MYERS SQUIBB COMPANY-13661210

PATIENT
  Age: 65 Year
  Sex: Female
  Weight: 67 kg

DRUGS (5)
  1. ORENCIA [Suspect]
     Indication: RHEUMATOID ARTHRITIS
     Route: 042
  2. ARAVA [Concomitant]
  3. TOPROL-XL [Concomitant]
  4. VYTORIN [Concomitant]
  5. NORVASC [Concomitant]

REACTIONS (2)
  - HEADACHE [None]
  - TINNITUS [None]
